FAERS Safety Report 5934194-3 (Version None)
Quarter: 2008Q4

REPORT INFORMATION
  Report Type: 
  Country: None (occurrence: None)
  Receive Date: 20081029
  Receipt Date: 20080801
  Transmission Date: 20090506
  Serious: No
  Sender: FDA-Public Use
  Company Number: A0740718A

PATIENT

DRUGS (1)
  1. FLOVENT [Suspect]
     Route: 055

REACTIONS (1)
  - WEIGHT DECREASED [None]
